FAERS Safety Report 6163081-3 (Version None)
Quarter: 2009Q2

REPORT INFORMATION
  Report Type: 
  Country: None (occurrence: None)
  Receive Date: 20090422
  Receipt Date: 20090409
  Transmission Date: 20091009
  Serious: Yes (Other)
  Sender: FDA-Public Use
  Company Number: HU-BAYER-200918297GPV

PATIENT
  Age: 31 Year
  Sex: Female

DRUGS (2)
  1. PLAN B [Suspect]
     Indication: POST COITAL CONTRACEPTION
     Dosage: TOTAL DAILY DOSE: 1.5 MG  UNIT DOSE: 0.75 MG
     Route: 048
     Dates: start: 20090315, end: 20090315
  2. YAZ [Suspect]
     Indication: ORAL CONTRACEPTION
     Route: 048

REACTIONS (2)
  - ECTOPIC PREGNANCY [None]
  - VAGINAL HAEMORRHAGE [None]
